FAERS Safety Report 8574602-5 (Version None)
Quarter: 2012Q3

REPORT INFORMATION
  Report Type: 
  Country: None (occurrence: None)
  Receive Date: 20120807
  Receipt Date: 20120803
  Transmission Date: 20120928
  Serious: Yes (Hospitalization)
  Sender: FDA-Public Use
  Company Number: DE-AMGEN-DEUSP2012048631

PATIENT

DRUGS (8)
  1. CYCLOPHOSPHAMIDE [Concomitant]
     Dosage: 1250 MG/M2, UNK
     Dates: start: 20120721
  2. NEULASTA [Suspect]
     Indication: PRODUCT USED FOR UNKNOWN INDICATION
     Dosage: UNK
  3. PREDNISONE TAB [Concomitant]
     Dosage: 40 MG/M2, UNK
     Dates: start: 20120721
  4. ADRIAMYCIN PFS [Concomitant]
     Dosage: 35 MG/M2, UNK
     Dates: start: 20120721
  5. BLEOMYCIN SULFATE [Concomitant]
     Dosage: 10 MG/M2, UNK
     Dates: start: 20120721
  6. PROCARBAZINE HYDROCHLORIDE [Concomitant]
     Dosage: 100 MG/M2, UNK
     Dates: start: 20120721
  7. ETOPOSIDE [Concomitant]
     Dosage: 200 MG/M2, UNK
     Dates: start: 20120721
  8. VINCRISTINE [Concomitant]
     Dosage: 1.4 MG/M2, UNK
     Dates: start: 20120721

REACTIONS (1)
  - PAIN [None]
